FAERS Safety Report 4765392-2 (Version None)
Quarter: 2005Q3

REPORT INFORMATION
  Report Type: 
  Country: None (occurrence: None)
  Receive Date: 20050908
  Receipt Date: 20050908
  Transmission Date: 20060218
  Serious: Yes (Hospitalization)
  Sender: FDA-Public Use
  Company Number: None

PATIENT
  Age: 58 Year
  Sex: Male
  Weight: 67.586 kg

DRUGS (1)
  1. PHENYTOIN [Suspect]
     Indication: EPILEPSY
     Dosage: 150MG   TWICE DAILY   PO
     Route: 048
     Dates: start: 20001201, end: 20050715

REACTIONS (11)
  - BLOOD ALBUMIN DECREASED [None]
  - DEHYDRATION [None]
  - DRUG LEVEL CHANGED [None]
  - EATING DISORDER [None]
  - HYPOTHERMIA [None]
  - HYPOXIA [None]
  - IRRITABILITY [None]
  - MOVEMENT DISORDER [None]
  - ORAL INTAKE REDUCED [None]
  - SCREAMING [None]
  - SOMNOLENCE [None]
